FAERS Safety Report 8415522-6 (Version None)
Quarter: 2012Q2

REPORT INFORMATION
  Report Type: 
  Country: None (occurrence: None)
  Receive Date: 20120323
  Receipt Date: 20111222
  Transmission Date: 20120825
  Serious: Yes (Other)
  Sender: FDA-Public Use
  Company Number: 163-21880-11120889

PATIENT
  Age: 66 Year
  Sex: Male

DRUGS (6)
  1. VITAMIN B12 [Concomitant]
  2. BLOOD PRESSURE MEDICATION (ANTIHYPERTENSIVES) [Concomitant]
  3. REVLIMID [Suspect]
     Indication: MULTIPLE MYELOMA
     Dosage: 10 MG, 1 IN 1 D, PO
     Route: 048
     Dates: start: 20110909, end: 20110910
  4. REVLIMID [Suspect]
     Indication: MULTIPLE MYELOMA
     Dosage: 10 MG, 1 IN 1 D, PO;
     Route: 048
     Dates: start: 20100129
  5. VITAMIN B COMPLEX CAP [Concomitant]
  6. ZOMETA [Concomitant]

REACTIONS (6)
  - ORAL CANDIDIASIS [None]
  - CHILLS [None]
  - HERPES SIMPLEX [None]
  - PYREXIA [None]
  - DEHYDRATION [None]
  - STOMATITIS [None]
